FAERS Safety Report 6655865-X (Version None)
Quarter: 2010Q1

REPORT INFORMATION
  Report Type: 
  Country: None (occurrence: None)
  Receive Date: 20100329
  Receipt Date: 20100316
  Transmission Date: 20100710
  Serious: Yes (Hospitalization)
  Sender: FDA-Public Use
  Company Number: US-ROCHE-693506

PATIENT
  Age: 68 Year
  Sex: Female

DRUGS (5)
  1. BONIVA [Suspect]
     Indication: OSTEOPOROSIS
     Dosage: INDICATION: OSTEOPENIA
     Route: 048
     Dates: start: 20080101
  2. LIPITOR [Concomitant]
  3. ASPIRIN [Concomitant]
  4. CHONDROITIN [Concomitant]
  5. COQ-10 [Concomitant]

REACTIONS (2)
  - ARTHROPATHY [None]
  - KNEE ARTHROPLASTY [None]
